FAERS Safety Report 16939341 (Version 2)
Quarter: 2019Q4

REPORT INFORMATION
  Report Type: Spontaneous
  Country: MX (occurrence: MX)
  Receive Date: 20191021
  Receipt Date: 20191101
  Transmission Date: 20200122
  Serious: Yes (Other)
  Sender: FDA-Public Use
  Company Number: MX-TEVA-2019-MX-1125275

PATIENT
  Age: 1 Year
  Sex: Male

DRUGS (13)
  1. METHOTREXATE. [Suspect]
     Active Substance: METHOTREXATE
     Indication: NATURAL KILLER-CELL LEUKAEMIA
     Dosage: MIED PROTOCOL; METHOTREXATE 24H IV INFUSION ON DAY ONE
     Route: 041
  2. MESNA. [Concomitant]
     Active Substance: MESNA
     Dosage: SMILE PROTOCOL; IV DOSE OF MESNA 500 MG/M2 EVERY 6 H
     Route: 042
  3. METHOTREXATE. [Suspect]
     Active Substance: METHOTREXATE
     Dosage: SMILE PROTOCOL; METHOTREXATE 5,000 MG/M2/DAY, 24 H IV INFUSION ON DAY ONE
     Route: 041
  4. L-ASPARGINASE [Suspect]
     Active Substance: ASPARAGINASE
     Indication: NATURAL KILLER-CELL LEUKAEMIA
     Dosage: SMILE PROTOCOL; ASPARAGINASE 6,000 U/M2 ON DAYS 8,10,12,14,16,18 AND 20
     Route: 065
  5. FOLINIC ACID [Suspect]
     Active Substance: LEUCOVORIN
     Indication: NATURAL KILLER-CELL LEUKAEMIA
     Dosage: MIED PROTOCOL; FOLINIC ACID 15 MG/M2/DOSE, STARTING AT HOUR 36 OF METHOTREXATE FOR FIVE IV DOSES
     Route: 042
  6. FOLINIC ACID [Suspect]
     Active Substance: LEUCOVORIN
     Dosage: SMILE PROTOCOL; FOLINIC ACID 15 MG/M2/IV DOSE STARTING AT HOUR 36 OF METHOTREXATE FOR FIVE DOSES
     Route: 042
  7. IFOSFAMIDE. [Suspect]
     Active Substance: IFOSFAMIDE
     Dosage: SMILE PROTOCOL; IFOSFAMIDE 1,500 MG/M2/DAY IN 1 H ON DAYS 2-4
     Route: 065
  8. ETOPOSIDE. [Suspect]
     Active Substance: ETOPOSIDE
     Indication: NATURAL KILLER-CELL LEUKAEMIA
     Dosage: MIED PROTOCOL; IV ETOPOSIDE 200 MG/M2/DAY IN 3 H ON DAYS 2-4
     Route: 042
  9. METHOTREXATE. [Suspect]
     Active Substance: METHOTREXATE
     Dosage: 10 MG/M2/WEEKLY DOSE FOR FIVE WEEKS
     Route: 030
  10. ETOPOSIDE. [Suspect]
     Active Substance: ETOPOSIDE
     Dosage: SMILE PROTOCOL; IV ETOPOSIDE 100 MG/M2/DAY IN 3H ON DAYS 2-4
     Route: 042
  11. IFOSFAMIDE. [Suspect]
     Active Substance: IFOSFAMIDE
     Indication: NATURAL KILLER-CELL LEUKAEMIA
     Dosage: MIED PROTOCOL; IFOSFAMIDE 2,000 MG/M2/DAY IN 1 H ON DAYS 2-4
     Route: 065
  12. DEXAMETHASONE. [Suspect]
     Active Substance: DEXAMETHASONE
     Indication: NATURAL KILLER-CELL LEUKAEMIA
     Dosage: SMILE PROTOCOL; IV DOSE OF DEXAMETHASONE 40 MG/M2 EVERY 8 H ON DAYS 2-4
     Route: 042
  13. MESNA. [Concomitant]
     Active Substance: MESNA
     Dosage: MIED PROTOCOL; IV DOSE OF MESNA 500 MG/M2 EVERY 6 H
     Route: 042

REACTIONS (1)
  - Pancytopenia [Unknown]
